FAERS Safety Report 18527198 (Version 4)
Quarter: 2021Q3

REPORT INFORMATION
  Report Type: Spontaneous
  Country: US (occurrence: US)
  Receive Date: 20201120
  Receipt Date: 20210831
  Transmission Date: 20211014
  Serious: Yes (Other)
  Sender: FDA-Public Use
  Company Number: US-PFIZER INC-2020457885

PATIENT
  Age: 39 Year
  Sex: Female

DRUGS (2)
  1. LEFLUNOMIDE. [Interacting]
     Active Substance: LEFLUNOMIDE
     Dosage: UNK
     Dates: start: 20200930
  2. XELJANZ XR [Suspect]
     Active Substance: TOFACITINIB CITRATE
     Dosage: 11 MG
     Dates: start: 20200930, end: 20210804

REACTIONS (7)
  - Nasal disorder [Recovered/Resolved]
  - Rash [Recovered/Resolved]
  - Skin lesion [Recovered/Resolved]
  - Immunosuppression [Unknown]
  - Product dispensing error [Unknown]
  - Drug interaction [Unknown]
  - Prescription drug used without a prescription [Unknown]
